FAERS Safety Report 22685633 (Version 7)
Quarter: 2024Q3

REPORT INFORMATION
  Report Type: Spontaneous
  Country: JP (occurrence: JP)
  Receive Date: 20230710
  Receipt Date: 20240902
  Transmission Date: 20241017
  Serious: Yes (Hospitalization, Other)
  Sender: ASTELLAS
  Company Number: JP-ASTELLAS-2023JP002184

PATIENT
  Age: 73 Year
  Sex: Male
  Weight: 63 kg

DRUGS (17)
  1. PADCEV [Suspect]
     Active Substance: ENFORTUMAB VEDOTIN-EJFV
     Indication: Transitional cell carcinoma
     Dosage: 81 MG (1.25MG/KG), DAYS 1, 8, AND 15 OF A 28-DAY CYCLE
     Route: 042
     Dates: start: 20221122
  2. PADCEV [Suspect]
     Active Substance: ENFORTUMAB VEDOTIN-EJFV
     Indication: Ureteric cancer metastatic
     Dosage: 81 MG (1.25MG/KG), DAYS 1, 8, AND 15 OF A 28-DAY CYCLE
     Route: 042
     Dates: end: 20230315
  3. MIYA-BM [Concomitant]
     Active Substance: CLOSTRIDIUM BUTYRICUM SPORES STRAIN M-55
     Indication: Product used for unknown indication
     Dosage: UNK UNK, UNKNOWN FREQ.
     Route: 065
  4. DIMETHICONE [Concomitant]
     Active Substance: DIMETHICONE
     Indication: Product used for unknown indication
     Dosage: UNK UNK, UNKNOWN FREQ.
     Route: 065
  5. VONOPRAZAN FUMARATE [Concomitant]
     Active Substance: VONOPRAZAN FUMARATE
     Indication: Product used for unknown indication
     Dosage: UNK UNK, UNKNOWN FREQ.
     Route: 065
  6. SYMPROIC [Concomitant]
     Active Substance: NALDEMEDINE
     Indication: Product used for unknown indication
     Dosage: UNK UNK, UNKNOWN FREQ.
     Route: 065
  7. NAPROXEN SODIUM [Concomitant]
     Active Substance: NAPROXEN\NAPROXEN SODIUM
     Indication: Product used for unknown indication
     Dosage: UNK UNK, UNKNOWN FREQ.
     Route: 065
  8. CALONAL [Concomitant]
     Active Substance: ACETAMINOPHEN
     Indication: Product used for unknown indication
     Dosage: UNK UNK, UNKNOWN FREQ.
     Route: 065
  9. OXYCODONE HYDROCHLORIDE [Concomitant]
     Active Substance: OXYCODONE HYDROCHLORIDE
     Indication: Product used for unknown indication
     Dosage: UNK UNK, UNKNOWN FREQ.
     Route: 065
  10. Oxinorm [Concomitant]
     Indication: Product used for unknown indication
     Dosage: UNK UNK, UNKNOWN FREQ.
     Route: 065
  11. OXYGEN [Concomitant]
     Active Substance: OXYGEN
     Indication: Interstitial lung disease
     Dosage: 2 L, UNKNOWN FREQ.
     Route: 065
     Dates: start: 20230327
  12. PIPERACILLIN SODIUM\TAZOBACTAM SODIUM [Concomitant]
     Active Substance: PIPERACILLIN SODIUM\TAZOBACTAM SODIUM
     Indication: Interstitial lung disease
     Dosage: UNK UNK, UNKNOWN FREQ.
     Route: 042
     Dates: start: 20230327, end: 20230329
  13. METHYLPREDNISOLONE [Concomitant]
     Active Substance: METHYLPREDNISOLONE
     Indication: Interstitial lung disease
     Dosage: 1 G, ONCE DAILY
     Route: 042
     Dates: start: 20230329, end: 20230331
  14. PREDNISOLONE [Concomitant]
     Active Substance: PREDNISOLONE
     Indication: Interstitial lung disease
     Dosage: 60 MG, ONCE DAILY
     Route: 048
     Dates: start: 20230401
  15. PREDNISOLONE [Concomitant]
     Active Substance: PREDNISOLONE
     Dosage: 50 MG, ONCE DAILY
     Route: 048
     Dates: start: 20230415
  16. PREDNISOLONE [Concomitant]
     Active Substance: PREDNISOLONE
     Dosage: 40 MG, ONCE DAILY
     Route: 048
     Dates: start: 20230428
  17. PREDNISOLONE [Concomitant]
     Active Substance: PREDNISOLONE
     Dosage: 30 MG, ONCE DAILY
     Route: 048
     Dates: start: 20230512

REACTIONS (4)
  - Myelodysplastic syndrome [Recovering/Resolving]
  - Pneumonia [Recovering/Resolving]
  - Interstitial lung disease [Recovering/Resolving]
  - Prescribed overdose [Unknown]

NARRATIVE: CASE EVENT DATE: 20221122
